FAERS Safety Report 9716923 (Version 2)
Quarter: 2015Q3

REPORT INFORMATION
  Report Type: Spontaneous
  Country: US (occurrence: US)
  Receive Date: 20131127
  Receipt Date: 20150803
  Transmission Date: 20151125
  Serious: No
  Sender: FDA-Public Use
  Company Number: US-GILEAD-2009-0019951

PATIENT
  Age: 73 Year
  Sex: Female
  Weight: 69.85 kg

DRUGS (8)
  1. LETAIRIS [Suspect]
     Active Substance: AMBRISENTAN
     Indication: PULMONARY ARTERIAL HYPERTENSION
     Route: 048
     Dates: start: 20071205
  2. LASIX [Concomitant]
     Active Substance: FUROSEMIDE
  3. ALBUTEROL INHALER [Concomitant]
     Active Substance: ALBUTEROL
  4. PROZAC [Concomitant]
     Active Substance: FLUOXETINE HYDROCHLORIDE
  5. TYLENOL [Concomitant]
     Active Substance: ACETAMINOPHEN
  6. ALDACTONE [Concomitant]
     Active Substance: SPIRONOLACTONE
  7. PRINIVIL [Concomitant]
     Active Substance: LISINOPRIL
  8. K-DUR [Concomitant]
     Active Substance: POTASSIUM CHLORIDE

REACTIONS (4)
  - Oropharyngeal pain [Unknown]
  - Abdominal distension [Unknown]
  - Lymphadenopathy [Unknown]
  - Nodule [Unknown]
